FAERS Safety Report 24529317 (Version 1)
Quarter: 2024Q4

REPORT INFORMATION
  Report Type: Spontaneous
  Country: US (occurrence: None)
  Receive Date: 20241018
  Receipt Date: 20241018
  Transmission Date: 20250114
  Serious: Yes (Life-Threatening, Hospitalization)
  Sender: Public
  Company Number: None

PATIENT
  Age: 27 Year
  Sex: Male
  Weight: 89.1 kg

DRUGS (1)
  1. LUMASON [Suspect]
     Active Substance: SULFUR HEXAFLUORIDE
     Indication: Scan with contrast
     Dosage: OTHER FREQUENCY : ONCE;?
     Route: 042
     Dates: start: 20241018, end: 20241018

REACTIONS (5)
  - Dyspnoea [None]
  - Dizziness [None]
  - Nausea [None]
  - Flushing [None]
  - Cardio-respiratory arrest [None]

NARRATIVE: CASE EVENT DATE: 20241018
